FAERS Safety Report 9068142 (Version 1)
Quarter: 2013Q1

REPORT INFORMATION
  Report Type: Spontaneous
  Country: US (occurrence: US)
  Receive Date: 20130215
  Receipt Date: 20130215
  Transmission Date: 20140127
  Serious: Yes (Other)
  Sender: FDA-Public Use
  Company Number: US-BIOGENIDEC-2013BI008562

PATIENT
  Age: 55 Year
  Sex: Female

DRUGS (4)
  1. AVONEX [Suspect]
     Indication: MULTIPLE SCLEROSIS
     Route: 030
     Dates: start: 20130118
  2. XANAX [Concomitant]
     Indication: DEPRESSION
  3. SEIZURE MEDICATION (NOS) [Concomitant]
     Indication: GRAND MAL CONVULSION
  4. ANTI-DEPRESSANT (NOS) [Concomitant]
     Indication: DEPRESSION

REACTIONS (8)
  - Grand mal convulsion [Recovered/Resolved]
  - Joint swelling [Recovered/Resolved]
  - Memory impairment [Not Recovered/Not Resolved]
  - Pain [Unknown]
  - Fatigue [Not Recovered/Not Resolved]
  - Influenza like illness [Recovered/Resolved]
  - Depression [Recovered/Resolved]
  - Anxiety [Recovered/Resolved]
